FAERS Safety Report 16868384 (Version 7)
Quarter: 2020Q3

REPORT INFORMATION
  Report Type: Spontaneous
  Country: US (occurrence: US)
  Receive Date: 20190930
  Receipt Date: 20200806
  Transmission Date: 20201102
  Serious: No
  Sender: FDA-Public Use
  Company Number: US-PFIZER INC-2019415692

PATIENT
  Age: 67 Year
  Sex: Female

DRUGS (1)
  1. IBRANCE [Suspect]
     Active Substance: PALBOCICLIB
     Indication: BREAST CANCER MALE
     Dosage: 125 MG, CYCLIC(TAKE 1 CAPSULE BY MOUTH DAILY WITH FOOD FOR 21 CONSECUTIVE DAYS THEN STOP FOR 7 CONS)
     Route: 048
     Dates: start: 20190920

REACTIONS (10)
  - Fatigue [Unknown]
  - Anal pruritus [Unknown]
  - Dizziness [Unknown]
  - Alopecia [Unknown]
  - Blood count abnormal [Unknown]
  - Diarrhoea [Recovering/Resolving]
  - Blood glucose decreased [Unknown]
  - Constipation [Unknown]
  - Paraesthesia [Unknown]
  - Stomatitis [Unknown]

NARRATIVE: CASE EVENT DATE: 2019
